FAERS Safety Report 6985312-X (Version None)
Quarter: 2010Q3

REPORT INFORMATION
  Report Type: 
  Country: None (occurrence: None)
  Receive Date: 20100915
  Receipt Date: 20100903
  Transmission Date: 20110219
  Serious: No
  Sender: FDA-Public Use
  Company Number: US-PFIZER INC-2010112391

PATIENT
  Sex: Male

DRUGS (2)
  1. CHANTIX [Suspect]
     Indication: SMOKING CESSATION THERAPY
     Dosage: 0.5 MG, 1X/DAY
     Route: 048
     Dates: start: 20100807
  2. CHANTIX [Suspect]
     Dosage: UNK
     Dates: start: 20100101

REACTIONS (3)
  - ABNORMAL DREAMS [None]
  - DIZZINESS [None]
  - NAUSEA [None]
